FAERS Safety Report 16990738 (Version 3)
Quarter: 2020Q1

REPORT INFORMATION
  Report Type: Spontaneous
  Country: DE (occurrence: DE)
  Receive Date: 20191104
  Receipt Date: 20200121
  Transmission Date: 20200409
  Serious: Yes (Life-Threatening, Other)
  Sender: FDA-Public Use
  Company Number: DE-PFIZER INC-2019471569

PATIENT
  Age: 79 Year
  Sex: Female
  Weight: 66 kg

DRUGS (10)
  1. IBRANCE [Suspect]
     Active Substance: PALBOCICLIB
     Dosage: UNK
     Dates: start: 20190902, end: 20190917
  2. PANTOPRAZOLE [Concomitant]
     Active Substance: PANTOPRAZOLE
     Dosage: 20 MG, DAILY (LONG-TERM THERAPY)
     Route: 048
  3. IBRANCE [Suspect]
     Active Substance: PALBOCICLIB
     Indication: BREAST CANCER
     Dosage: 125 MG, 1X/DAY
     Route: 048
     Dates: start: 201812, end: 201901
  4. MARCUMAR [Concomitant]
     Active Substance: PHENPROCOUMON
     Dosage: ACCORDING TO THERAPY PLAN, (LONG-TERM THERAPY)
     Route: 048
  5. METOPROLOL. [Concomitant]
     Active Substance: METOPROLOL
     Dosage: 47.5 MG, DAILY, (LONG-TERM THERAPY)
     Route: 048
  6. MEMANTINE. [Concomitant]
     Active Substance: MEMANTINE
     Dosage: 20 MG, DAILY
     Route: 048
  7. EXEMESTANE. [Concomitant]
     Active Substance: EXEMESTANE
     Dosage: 25 MG, DAILY, (LONG-TERM THERAPY)
     Route: 048
     Dates: start: 201812
  8. IBRANCE [Suspect]
     Active Substance: PALBOCICLIB
     Dosage: 75 MG, 1X/DAY
     Route: 048
     Dates: start: 201901, end: 201908
  9. VELMETIA [Concomitant]
     Active Substance: METFORMIN\SITAGLIPTIN
     Dosage: 850/50 MG, DAILY, (LONG-TERM THERAPY)
     Route: 048
  10. TORASEMIDE [Concomitant]
     Active Substance: TORSEMIDE
     Dosage: 5 MG, DAILY, (LONG-TERM THERAPY)
     Route: 048

REACTIONS (3)
  - Acute myeloid leukaemia [Not Recovered/Not Resolved]
  - Second primary malignancy [Not Recovered/Not Resolved]
  - Pancytopenia [Unknown]

NARRATIVE: CASE EVENT DATE: 201908
